FAERS Safety Report 21271669 (Version 2)
Quarter: 2022Q3

REPORT INFORMATION
  Report Type: Report from Study
  Country: US (occurrence: US)
  Receive Date: 20220830
  Receipt Date: 20220916
  Transmission Date: 20221027
  Serious: Yes (Hospitalization)
  Sender: FDA-Public Use
  Company Number: US-TAKEDA-2022TUS059972

PATIENT
  Age: 69 Year
  Sex: Female
  Weight: 95.7 kg

DRUGS (12)
  1. TEDUGLUTIDE [Suspect]
     Active Substance: TEDUGLUTIDE
     Indication: Short-bowel syndrome
     Dosage: 6.5 MILLIGRAM, QD
     Route: 042
     Dates: start: 20180712, end: 20190724
  2. TEDUGLUTIDE [Suspect]
     Active Substance: TEDUGLUTIDE
     Indication: Short-bowel syndrome
     Dosage: 6.5 MILLIGRAM, QD
     Route: 042
     Dates: start: 20180712, end: 20190724
  3. TEDUGLUTIDE [Suspect]
     Active Substance: TEDUGLUTIDE
     Indication: Short-bowel syndrome
     Dosage: 6.5 MILLIGRAM, QD
     Route: 042
     Dates: start: 20180712, end: 20190724
  4. TEDUGLUTIDE [Suspect]
     Active Substance: TEDUGLUTIDE
     Indication: Short-bowel syndrome
     Dosage: 6.5 MILLIGRAM, QD
     Route: 042
     Dates: start: 20180712, end: 20190724
  5. TEDUGLUTIDE [Suspect]
     Active Substance: TEDUGLUTIDE
     Dosage: 5.5 MILLIGRAM, QD
     Route: 042
     Dates: start: 20190725
  6. TEDUGLUTIDE [Suspect]
     Active Substance: TEDUGLUTIDE
     Dosage: 5.5 MILLIGRAM, QD
     Route: 042
     Dates: start: 20190725
  7. TEDUGLUTIDE [Suspect]
     Active Substance: TEDUGLUTIDE
     Dosage: 5.5 MILLIGRAM, QD
     Route: 042
     Dates: start: 20190725
  8. TEDUGLUTIDE [Suspect]
     Active Substance: TEDUGLUTIDE
     Dosage: 5.5 MILLIGRAM, QD
     Route: 042
     Dates: start: 20190725
  9. PROCTOFOAM [Concomitant]
     Active Substance: PRAMOXINE HYDROCHLORIDE
     Indication: Haemorrhoids
     Dosage: UNK
     Route: 054
     Dates: start: 20200122
  10. HYDROCORTISONE ACETATE [Concomitant]
     Active Substance: HYDROCORTISONE ACETATE
     Indication: Haemorrhoids
     Dosage: 25 MILLIGRAM
     Route: 054
     Dates: start: 20200116
  11. LOMOTIL [Concomitant]
     Active Substance: ATROPINE SULFATE\DIPHENOXYLATE HYDROCHLORIDE
     Indication: Diarrhoea
     Dosage: 2.5 MILLIGRAM
     Route: 048
  12. GLUCOPHAGE [Concomitant]
     Active Substance: METFORMIN HYDROCHLORIDE
     Indication: Diabetes mellitus
     Dosage: 500 MILLIGRAM, QD
     Route: 048

REACTIONS (1)
  - Bronchitis [Recovered/Resolved]

NARRATIVE: CASE EVENT DATE: 20220311
